FAERS Safety Report 8548068-5 (Version None)
Quarter: 2012Q3

REPORT INFORMATION
  Report Type: 
  Country: None (occurrence: None)
  Receive Date: 20120730
  Receipt Date: 20120718
  Transmission Date: 20120928
  Serious: Yes (Other)
  Sender: FDA-Public Use
  Company Number: TR-AMGEN-TURSP2012026911

PATIENT
  Age: 32 Year
  Sex: Male

DRUGS (3)
  1. ENBREL [Suspect]
     Indication: ANKYLOSING SPONDYLITIS
     Dosage: 50 MG, WEEKLY
     Route: 058
     Dates: start: 20100401, end: 20120324
  2. ENBREL [Suspect]
     Dosage: UNK
     Dates: start: 20120501
  3. ENBREL [Suspect]
     Dosage: UNK
     Dates: start: 20120713

REACTIONS (8)
  - INFLUENZA [None]
  - MEMORY IMPAIRMENT [None]
  - FUNGAL SKIN INFECTION [None]
  - GINGIVITIS [None]
  - DECREASED IMMUNE RESPONSIVENESS [None]
  - MALAISE [None]
  - TOOTH INFECTION [None]
  - DEVICE FAILURE [None]
